FAERS Safety Report 14307599 (Version 1)
Quarter: 2017Q4

REPORT INFORMATION
  Report Type: Spontaneous
  Country: US (occurrence: US)
  Receive Date: 20171219
  Receipt Date: 20171219
  Transmission Date: 20180321
  Serious: Yes (Other)
  Sender: FDA-Public Use
  Company Number: None

PATIENT
  Age: 53 Year
  Sex: Male
  Weight: 78.75 kg

DRUGS (1)
  1. LEVOCETIRIZINE 5MG [Suspect]
     Active Substance: LEVOCETIRIZINE
     Indication: MULTIPLE ALLERGIES
     Dosage: ?          QUANTITY:1 TABLET(S);?
     Route: 048
     Dates: start: 20171208, end: 20171213

REACTIONS (1)
  - Dysuria [None]

NARRATIVE: CASE EVENT DATE: 20171211
